FAERS Safety Report 25570999 (Version 3)
Quarter: 2025Q3

REPORT INFORMATION
  Report Type: Report from Study
  Country: US (occurrence: US)
  Receive Date: 20250717
  Receipt Date: 20250913
  Transmission Date: 20251021
  Serious: Yes (Hospitalization, Other)
  Sender: AUROBINDO
  Company Number: US-MLMSERVICE-20250704-PI528199-00108-1

PATIENT
  Age: 29 Year
  Sex: Male

DRUGS (11)
  1. CLOZAPINE [Interacting]
     Active Substance: CLOZAPINE
     Indication: Bipolar disorder
     Dosage: 200 MILLIGRAM, ONCE A DAY
     Route: 065
  2. CLOZAPINE [Interacting]
     Active Substance: CLOZAPINE
     Dosage: 100 MILLIGRAM, ONCE A DAY(CLOZAPINE DOSE WAS REDUCED FROM 200MG TO 100MG QHS)
     Route: 065
  3. CLOZAPINE [Interacting]
     Active Substance: CLOZAPINE
     Dosage: 150 MILLIGRAM, ONCE A DAY(CLOZAPINE HAD BEEN INCREASED FROM 100MG QHS AT DISCHARGE TO 150MG QHS)
     Route: 065
  4. QUETIAPINE [Suspect]
     Active Substance: QUETIAPINE
     Indication: Product used for unknown indication
     Route: 065
  5. ISAVUCONAZOLE [Interacting]
     Active Substance: ISAVUCONAZOLE
     Indication: Product used for unknown indication
     Route: 065
  6. DEXMEDETOMIDINE [Concomitant]
     Active Substance: DEXMEDETOMIDINE
     Indication: Agitation
     Route: 065
  7. OLANZAPINE [Concomitant]
     Active Substance: OLANZAPINE
     Indication: Agitation
     Route: 065
  8. CHLORPROMAZINE [Concomitant]
     Active Substance: CHLORPROMAZINE
     Indication: Agitation
     Route: 065
  9. DOCUSATE [Concomitant]
     Active Substance: DOCUSATE
     Indication: Product used for unknown indication
     Route: 065
  10. SENNA [Concomitant]
     Active Substance: SENNOSIDES
     Indication: Product used for unknown indication
     Route: 065
  11. GLYCOPYRROLATE [Concomitant]
     Active Substance: GLYCOPYRROLATE
     Indication: Drooling
     Route: 065

REACTIONS (8)
  - Aspiration [Unknown]
  - Ileus [Unknown]
  - Respiratory failure [Unknown]
  - Drooling [Unknown]
  - Antipsychotic drug level increased [Recovered/Resolved]
  - Drug interaction [Unknown]
  - Suicide attempt [Unknown]
  - Intentional overdose [Unknown]
